FAERS Safety Report 26158063 (Version 1)
Quarter: 2025Q4

REPORT INFORMATION
  Report Type: Spontaneous
  Country: EU (occurrence: EU)
  Receive Date: 20251215
  Receipt Date: 20251215
  Transmission Date: 20260117
  Serious: Yes (Other)
  Sender: B. BRAUN MEDICAL INC.
  Company Number: None

PATIENT
  Age: 52 Year
  Sex: Male

DRUGS (3)
  1. ACETAMINOPHEN [Suspect]
     Active Substance: ACETAMINOPHEN
  2. HEROIN [Suspect]
     Active Substance: DIAMORPHINE
  3. CAFFEINE [Suspect]
     Active Substance: CAFFEINE

REACTIONS (3)
  - Drug abuse [Not Recovered/Not Resolved]
  - Nasal discomfort [Recovered/Resolved]
  - Product use issue [Unknown]

NARRATIVE: CASE EVENT DATE: 20250803
